FAERS Safety Report 14419034 (Version 1)
Quarter: 2018Q1

REPORT INFORMATION
  Report Type: Spontaneous
  Country: US (occurrence: US)
  Receive Date: 20180122
  Receipt Date: 20180122
  Transmission Date: 20180509
  Serious: Yes (Other)
  Sender: FDA-Public Use
  Company Number: US-BIOGEN-2018BI00512657

PATIENT
  Age: 30 Year
  Sex: Female

DRUGS (1)
  1. TYSABRI [Suspect]
     Active Substance: NATALIZUMAB
     Indication: MULTIPLE SCLEROSIS
     Route: 065
     Dates: end: 201801

REACTIONS (7)
  - Flushing [Unknown]
  - Stress [Unknown]
  - Oropharyngeal discomfort [Unknown]
  - Blood test abnormal [Unknown]
  - Blister [Unknown]
  - Urticaria [Unknown]
  - Anxiety [Unknown]
